FAERS Safety Report 7507128-8 (Version None)
Quarter: 2011Q2

REPORT INFORMATION
  Report Type: 
  Country: None (occurrence: None)
  Receive Date: 20110526
  Receipt Date: 20110513
  Transmission Date: 20111010
  Serious: Yes (Other)
  Sender: FDA-Public Use
  Company Number: US-CELGENEUS-163-21880-11042944

PATIENT
  Sex: Male

DRUGS (2)
  1. REVLIMID [Suspect]
     Indication: MULTIPLE MYELOMA
     Dosage: 25 MILLIGRAM
     Route: 048
     Dates: start: 20110328
  2. REVLIMID [Suspect]
     Dosage: 15 MILLIGRAM
     Route: 048
     Dates: start: 20110502

REACTIONS (1)
  - PANCYTOPENIA [None]
